FAERS Safety Report 22281004 (Version 5)
Quarter: 2023Q4

REPORT INFORMATION
  Report Type: Spontaneous
  Country: JP (occurrence: JP)
  Receive Date: 20230504
  Receipt Date: 20231031
  Transmission Date: 20240110
  Serious: Yes (Other)
  Sender: FDA-Public Use
  Company Number: JP-BRISTOL-MYERS SQUIBB COMPANY-2023-061191

PATIENT
  Age: 4 Decade
  Sex: Female

DRUGS (16)
  1. SPRYCEL [Suspect]
     Active Substance: DASATINIB
     Indication: Product used for unknown indication
     Dates: start: 20221116, end: 20230411
  2. BLINCYTO [Suspect]
     Active Substance: BLINATUMOMAB
     Indication: B precursor type acute leukaemia
     Route: 042
     Dates: start: 20230113
  3. BLINCYTO [Suspect]
     Active Substance: BLINATUMOMAB
     Route: 042
     Dates: start: 2023
  4. BLINCYTO [Suspect]
     Active Substance: BLINATUMOMAB
     Route: 042
     Dates: start: 2023, end: 20230324
  5. BLINCYTO [Suspect]
     Active Substance: BLINATUMOMAB
     Route: 042
     Dates: start: 2023
  6. BLINCYTO [Suspect]
     Active Substance: BLINATUMOMAB
     Route: 042
     Dates: start: 2023
  7. BLINCYTO [Suspect]
     Active Substance: BLINATUMOMAB
     Route: 042
     Dates: start: 20230519
  8. BLINCYTO [Suspect]
     Active Substance: BLINATUMOMAB
     Route: 042
     Dates: start: 20230630, end: 20230727
  9. ICLUSIG [Concomitant]
     Active Substance: PONATINIB
     Indication: Product used for unknown indication
     Dates: start: 20230414
  10. ICLUSIG [Concomitant]
     Active Substance: PONATINIB
  11. UNSPECIFIED INGREDIENT [Concomitant]
     Active Substance: UNSPECIFIED INGREDIENT
     Indication: Product used for unknown indication
     Dates: start: 20230113
  12. PREDNISOLONE [Concomitant]
     Active Substance: PREDNISOLONE
     Indication: Product used for unknown indication
  13. POLARAMINE [Concomitant]
     Active Substance: DEXCHLORPHENIRAMINE MALEATE
     Indication: Product used for unknown indication
     Dates: start: 20230113
  14. DEXAMETHASONE SODIUM PHOSPHATE [Concomitant]
     Active Substance: DEXAMETHASONE SODIUM PHOSPHATE
     Indication: Product used for unknown indication
  15. DEXAMETHASONE SODIUM PHOSPHATE [Concomitant]
     Active Substance: DEXAMETHASONE SODIUM PHOSPHATE
  16. DEXAMETHASONE SODIUM PHOSPHATE [Concomitant]
     Active Substance: DEXAMETHASONE SODIUM PHOSPHATE

REACTIONS (10)
  - Hypotension [Recovered/Resolved]
  - Cytokine release syndrome [Recovered/Resolved]
  - Throat irritation [Recovered/Resolved]
  - Neutrophil count decreased [Not Recovered/Not Resolved]
  - Diarrhoea [Recovered/Resolved]
  - Headache [Recovering/Resolving]
  - Pain in extremity [Recovered/Resolved]
  - Arthralgia [Recovered/Resolved]
  - Nausea [Recovered/Resolved]
  - Lymphocyte count decreased [Recovered/Resolved]

NARRATIVE: CASE EVENT DATE: 20230101
